FAERS Safety Report 24272711 (Version 3)
Quarter: 2025Q3

REPORT INFORMATION
  Report Type: Report from Study
  Country: US (occurrence: US)
  Receive Date: 20240902
  Receipt Date: 20250810
  Transmission Date: 20251021
  Serious: Yes (Hospitalization, Other)
  Sender: ALEXION PHARMACEUTICALS
  Company Number: US-AstraZeneca-CH-00692359A

PATIENT
  Sex: Female

DRUGS (3)
  1. SOLIRIS [Suspect]
     Active Substance: ECULIZUMAB
     Indication: Neuromyelitis optica spectrum disorder
     Dosage: UNK, Q2W
     Route: 065
  2. UPLIZNA [Suspect]
     Active Substance: INEBILIZUMAB-CDON
     Route: 065
  3. ENSPRYNG [Concomitant]
     Active Substance: SATRALIZUMAB-MWGE
     Route: 065

REACTIONS (4)
  - Headache [Recovered/Resolved]
  - Neuromyelitis optica spectrum disorder [Recovering/Resolving]
  - Vomiting [Unknown]
  - Illness [Unknown]
